FAERS Safety Report 19984013 (Version 1)
Quarter: 2021Q4

REPORT INFORMATION
  Report Type: Spontaneous
  Country: US (occurrence: US)
  Receive Date: 20211022
  Receipt Date: 20211022
  Transmission Date: 20220303
  Serious: Yes (Other)
  Sender: FDA-Public Use
  Company Number: US-MYLANLABS-2021M1073988

PATIENT
  Sex: Female

DRUGS (1)
  1. ESTRADIOL TRANSDERMAL SYSTEM [Suspect]
     Active Substance: ESTRADIOL
     Indication: Product used for unknown indication
     Dosage: UNK
     Route: 062

REACTIONS (8)
  - Application site haemorrhage [Unknown]
  - Application site vesicles [Unknown]
  - Application site exfoliation [Unknown]
  - Application site pruritus [Unknown]
  - Application site irritation [Unknown]
  - Product adhesion issue [Unknown]
  - Application site urticaria [Unknown]
  - Application site scar [Unknown]
